FAERS Safety Report 8548355-0 (Version None)
Quarter: 2012Q3

REPORT INFORMATION
  Report Type: 
  Country: None (occurrence: None)
  Receive Date: 20120730
  Receipt Date: 20120719
  Transmission Date: 20120928
  Serious: Yes (Other)
  Sender: FDA-Public Use
  Company Number: JP-JNJFOC-20120711124

PATIENT

DRUGS (2)
  1. GALANTAMINE HYDROBROMIDE [Suspect]
     Indication: PRODUCT USED FOR UNKNOWN INDICATION
     Dosage: HALF A TABLET
     Route: 048
  2. GALANTAMINE HYDROBROMIDE [Suspect]
     Route: 048

REACTIONS (3)
  - DECREASED APPETITE [None]
  - DRUG PRESCRIBING ERROR [None]
  - WEIGHT DECREASED [None]
